FAERS Safety Report 4600814-9 (Version None)
Quarter: 2005Q1

REPORT INFORMATION
  Report Type: 
  Country: None (occurrence: None)
  Receive Date: 20050304
  Receipt Date: 20050221
  Transmission Date: 20050727
  Serious: Yes (Other)
  Sender: FDA-Public Use
  Company Number: 2005035019

PATIENT
  Age: 64 Year
  Sex: Male

DRUGS (4)
  1. CABERGOLINE [Suspect]
     Indication: PARKINSONISM
     Dosage: (6 MG), ORAL
     Route: 048
     Dates: start: 20000124
  2. PERGOLIDE (PERGOLIDE) [Concomitant]
  3. SINEMET [Concomitant]
  4. AMANTADINE (AMANTADINE) [Concomitant]

REACTIONS (3)
  - MITRAL VALVE DISEASE [None]
  - MITRAL VALVE INCOMPETENCE [None]
  - PLEURAL DISORDER [None]
